FAERS Safety Report 4632369-7 (Version None)
Quarter: 2005Q2

REPORT INFORMATION
  Report Type: 
  Country: None (occurrence: None)
  Receive Date: 20050411
  Receipt Date: 20050408
  Transmission Date: 20051028
  Serious: Yes (Other)
  Sender: FDA-Public Use
  Company Number: US-GLAXOSMITHKLINE-A0553393A

PATIENT
  Age: 59 Year
  Sex: Female

DRUGS (15)
  1. ADVAIR DISKUS 100/50 [Suspect]
     Indication: ASTHMA
     Dosage: 1PUFF PER DAY
     Route: 055
     Dates: start: 20010101
  2. GLUCOPHAGE XR [Concomitant]
  3. GLUCOTROL XL [Concomitant]
  4. NEXIUM [Concomitant]
  5. ACTOS [Concomitant]
  6. CLARINEX [Concomitant]
  7. FUROSEMIDE [Concomitant]
  8. LIPITOR [Concomitant]
  9. TOPROL-XL [Concomitant]
  10. SPIRONOLACTONE [Concomitant]
  11. CELEBREX [Concomitant]
  12. SYNTHROID [Concomitant]
  13. QUINAPRIL [Concomitant]
  14. PREMPRO [Concomitant]
  15. K-DUR 10 [Concomitant]

REACTIONS (4)
  - DYSPHONIA [None]
  - INJURY [None]
  - PURPURA [None]
  - SKIN ATROPHY [None]
